FAERS Safety Report 7080895-6 (Version None)
Quarter: 2010Q4

REPORT INFORMATION
  Report Type: 
  Country: None (occurrence: None)
  Receive Date: 20101103
  Receipt Date: 20101027
  Transmission Date: 20110411
  Serious: Yes (Hospitalization)
  Sender: FDA-Public Use
  Company Number: US-WYE-H18410710

PATIENT
  Sex: Male
  Weight: 95 kg

DRUGS (6)
  1. EFFEXOR XR [Suspect]
     Indication: DEPRESSION
     Dosage: UNKNOWN
     Dates: start: 19950101
  2. EFFEXOR XR [Suspect]
     Dates: end: 20101001
  3. EFFEXOR XR [Suspect]
     Dates: start: 20101026
  4. BACLOFEN [Concomitant]
     Dosage: UNKNOWN
  5. XANAX [Concomitant]
     Dosage: UNKNOWN - AS NEEDED
  6. METOPROLOL [Concomitant]
     Dosage: UNKNOWN

REACTIONS (12)
  - APHASIA [None]
  - CARDIAC ARREST [None]
  - COMA [None]
  - DRUG WITHDRAWAL SYNDROME [None]
  - HEADACHE [None]
  - LOSS OF CONSCIOUSNESS [None]
  - MENTAL STATUS CHANGES [None]
  - NAUSEA [None]
  - VIITH NERVE PARALYSIS [None]
  - VISUAL FIELD DEFECT [None]
  - VISUAL IMPAIRMENT [None]
  - VOMITING [None]
